FAERS Safety Report 19296759 (Version 1)
Quarter: 2021Q2

REPORT INFORMATION
  Report Type: Spontaneous
  Country: US (occurrence: US)
  Receive Date: 20210524
  Receipt Date: 20210524
  Transmission Date: 20210717
  Serious: No
  Sender: FDA-Public Use
  Company Number: US-MACLEODS PHARMACEUTICALS US LTD-MAC2021031227

PATIENT

DRUGS (1)
  1. LEVOFLOXACIN 500 MG [Suspect]
     Active Substance: LEVOFLOXACIN
     Indication: INFECTION
     Dosage: UNK, NDC CODE: 33342?0022?08
     Route: 065
     Dates: start: 20201028

REACTIONS (1)
  - Muscle spasms [Not Recovered/Not Resolved]
